FAERS Safety Report 6608481-X (Version None)
Quarter: 2010Q1

REPORT INFORMATION
  Report Type: 
  Country: None (occurrence: None)
  Receive Date: 20100301
  Receipt Date: 20100222
  Transmission Date: 20100710
  Serious: Yes (Other)
  Sender: FDA-Public Use
  Company Number: AU-MERCK-0910USA00954

PATIENT
  Age: 44 Year
  Sex: Male

DRUGS (7)
  1. ISENTRESS [Suspect]
     Indication: HIV INFECTION
     Route: 065
  2. STOCRIN [Suspect]
     Indication: HIV INFECTION
     Route: 065
  3. ATAZANAVIR SULFATE [Suspect]
     Indication: HIV INFECTION
     Route: 065
  4. INDINAVIR [Suspect]
     Indication: HIV INFECTION
     Route: 065
  5. LAMIVUDINE [Suspect]
     Indication: HIV INFECTION
     Route: 065
  6. ABACAVIR SULFATE [Suspect]
     Indication: HIV INFECTION
     Route: 065
  7. RITONAVIR [Suspect]
     Indication: HIV INFECTION
     Route: 065

REACTIONS (1)
  - PARKINSONISM [None]
